FAERS Safety Report 5176332-9 (Version None)
Quarter: 2006Q4

REPORT INFORMATION
  Report Type: 
  Country: None (occurrence: None)
  Receive Date: 20061215
  Receipt Date: 20061115
  Transmission Date: 20070319
  Serious: Yes (Hospitalization)
  Sender: FDA-Public Use
  Company Number: 2006SE06170

PATIENT
  Age: 12759 Day
  Sex: Male
  Weight: 103 kg

DRUGS (6)
  1. CANDESARTAN CILEXETIL,HYDROCHLOROTHIAZIDE [Suspect]
     Indication: HYPERTENSION
     Dosage: 16/12.5 MG DAILY
     Route: 048
     Dates: start: 20061019, end: 20061029
  2. CANDESARTAN CILEXETIL,HYDROCHLOROTHIAZIDE [Suspect]
     Route: 048
     Dates: start: 20061030
  3. SYR-322 CODE NOT BROKEN [Suspect]
     Indication: DIABETES MELLITUS NON-INSULIN-DEPENDENT
     Route: 048
     Dates: start: 20061026, end: 20061029
  4. SYR-322 CODE NOT BROKEN [Suspect]
     Route: 048
     Dates: start: 20061101
  5. NPH INSULIN [Concomitant]
     Route: 065
  6. LOSARTAN POTASSIUM [Concomitant]
     Indication: HYPERTENSION
     Route: 048
     Dates: start: 20051005, end: 20061018

REACTIONS (1)
  - HYPERSENSITIVITY [None]
